FAERS Safety Report 23974266 (Version 1)
Quarter: 2024Q2

REPORT INFORMATION
  Report Type: Spontaneous
  Country: CH (occurrence: CH)
  Receive Date: 20240614
  Receipt Date: 20240614
  Transmission Date: 20240715
  Serious: Yes (Hospitalization, Other)
  Sender: FDA-Public Use
  Company Number: None

PATIENT

DRUGS (8)
  1. VALTREX [Suspect]
     Active Substance: VALACYCLOVIR HYDROCHLORIDE
     Indication: Product used for unknown indication
     Dosage: 500 MG, BID (SINCE AT LEAST 07.2023)
     Route: 048
     Dates: start: 202307
  2. XOSPATA [Suspect]
     Active Substance: GILTERITINIB
     Indication: Acute myeloid leukaemia
     Dosage: 40 MG, QD
     Route: 065
     Dates: start: 20230808, end: 20230815
  3. XOSPATA [Suspect]
     Active Substance: GILTERITINIB
     Dosage: 80 MG, QD
     Route: 065
     Dates: start: 20230816, end: 20231221
  4. XOSPATA [Suspect]
     Active Substance: GILTERITINIB
     Dosage: 120 MG, QD
     Route: 065
     Dates: start: 20231222, end: 20240529
  5. PENICILLIN V [Suspect]
     Active Substance: PENICILLIN V
     Indication: Product used for unknown indication
     Dosage: UNK UNK, QD (SINCE AT LEAST 07.2023 (110 6.IU))
     Route: 048
     Dates: start: 202307
  6. BACTRIM [Suspect]
     Active Substance: SULFAMETHOXAZOLE\TRIMETHOPRIM
     Indication: Product used for unknown indication
     Dosage: 160 MG, 3W
     Route: 048
     Dates: start: 202307
  7. CALCIUM\CHOLECALCIFEROL [Concomitant]
     Active Substance: CALCIUM\CHOLECALCIFEROL
     Indication: Product used for unknown indication
     Dosage: UNK UNK, QD (1000 MG/800 IU)
     Route: 065
  8. URSODIOL [Concomitant]
     Active Substance: URSODIOL
     Indication: Product used for unknown indication
     Dosage: 250 MG, TID
     Route: 065

REACTIONS (3)
  - Renal tubular injury [Not Recovered/Not Resolved]
  - Lupus nephritis [Not Recovered/Not Resolved]
  - Angiopathy [Not Recovered/Not Resolved]

NARRATIVE: CASE EVENT DATE: 20240521
